FAERS Safety Report 7505649-5 (Version None)
Quarter: 2011Q2

REPORT INFORMATION
  Report Type: 
  Country: None (occurrence: None)
  Receive Date: 20110420
  Receipt Date: 20100218
  Transmission Date: 20111010
  Serious: Yes (Other)
  Sender: FDA-Public Use
  Company Number: WAES 1002USA04076

PATIENT
  Age: 55 Year
  Sex: Male

DRUGS (7)
  1. OMEGA-3 MARINE TRIGLYCERIDES [Concomitant]
  2. ONGLYZA [Suspect]
     Indication: TYPE 2 DIABETES MELLITUS
     Dosage: 5 MG/DAILY
     Dates: start: 20091101
  3. ASPIRIN [Concomitant]
  4. PRINZIDE [Suspect]
     Indication: PRODUCT USED FOR UNKNOWN INDICATION
     Dosage: 1 DOSE/DAILY/PO
     Route: 048
  5. LIPITOR [Concomitant]
  6. METFORMIN HCL [Suspect]
     Indication: TYPE 2 DIABETES MELLITUS
     Dates: end: 20100218
  7. GLIPIZIDE [Concomitant]

REACTIONS (1)
  - BLOOD CREATININE INCREASED [None]
